FAERS Safety Report 4720471-0 (Version None)
Quarter: 2005Q3

REPORT INFORMATION
  Report Type: 
  Country: None (occurrence: None)
  Receive Date: 20050721
  Receipt Date: 20040727
  Transmission Date: 20060218
  Serious: No
  Sender: FDA-Public Use
  Company Number: PR-BRISTOL-MYERS SQUIBB COMPANY-12651865

PATIENT
  Sex: Male

DRUGS (2)
  1. GLUCOVANCE [Suspect]
     Route: 048
  2. ACTOS [Suspect]
     Route: 048

REACTIONS (1)
  - BLOOD GLUCOSE INCREASED [None]
